FAERS Safety Report 13545198 (Version 1)
Quarter: 2017Q2

REPORT INFORMATION
  Report Type: Spontaneous
  Country: BR (occurrence: BR)
  Receive Date: 20170515
  Receipt Date: 20170515
  Transmission Date: 20170830
  Serious: Yes (Other)
  Sender: FDA-Public Use
  Company Number: BR-SA-2017SA072997

PATIENT
  Sex: Female

DRUGS (5)
  1. STILNOX [Suspect]
     Active Substance: ZOLPIDEM TARTRATE
     Indication: DEPRESSION
     Dosage: FORM:COATED TABLETS
     Route: 065
     Dates: start: 201702
  2. DONAREN [Concomitant]
     Active Substance: TRAZODONE HYDROCHLORIDE
     Route: 065
  3. RIVOTRIL [Concomitant]
     Active Substance: CLONAZEPAM
     Indication: DEPRESSION
     Route: 065
     Dates: start: 1997
  4. RIVOTRIL [Concomitant]
     Active Substance: CLONAZEPAM
     Indication: INSOMNIA
     Route: 065
     Dates: start: 1997
  5. STILNOX [Suspect]
     Active Substance: ZOLPIDEM TARTRATE
     Indication: INSOMNIA
     Dosage: FORM:COATED TABLETS
     Route: 065
     Dates: start: 201702

REACTIONS (15)
  - Diabetes mellitus [Unknown]
  - Apathy [Unknown]
  - Memory impairment [Unknown]
  - Osteoporosis [Unknown]
  - Pain [Unknown]
  - Feeling abnormal [Unknown]
  - Dysarthria [Unknown]
  - Delayed sleep phase [Unknown]
  - Lethargy [Unknown]
  - Drug ineffective [Unknown]
  - Dysstasia [Unknown]
  - Bone pain [Unknown]
  - Suicidal ideation [Unknown]
  - Asthenia [Unknown]
  - Insomnia [Unknown]

NARRATIVE: CASE EVENT DATE: 201704
